FAERS Safety Report 6500149-3 (Version None)
Quarter: 2009Q4

REPORT INFORMATION
  Report Type: 
  Country: None (occurrence: None)
  Receive Date: 20091216
  Receipt Date: 20091207
  Transmission Date: 20100525
  Serious: Yes (Hospitalization)
  Sender: FDA-Public Use
  Company Number: JP-ASTRAZENECA-2009SE30062

PATIENT
  Sex: Female
  Weight: 61 kg

DRUGS (8)
  1. BLOPRESS [Suspect]
     Indication: HYPERTENSION
     Route: 048
     Dates: start: 20050207
  2. NORVASC [Suspect]
     Indication: HYPERTENSION
     Route: 048
  3. BASEN OD [Concomitant]
     Indication: DIABETES MELLITUS
     Route: 048
  4. ACTOS [Concomitant]
     Indication: DIABETES MELLITUS
     Route: 048
  5. ASPIRIN [Concomitant]
     Indication: CEREBRAL INFARCTION
     Route: 048
  6. EUGLUCON [Concomitant]
     Indication: DIABETES MELLITUS
     Route: 048
  7. DICHLOTRIDE [Concomitant]
     Indication: OEDEMA
     Route: 048
  8. ALDACTONE [Concomitant]
     Indication: OEDEMA
     Route: 048

REACTIONS (1)
  - CEREBRAL HAEMORRHAGE [None]
